FAERS Safety Report 6082556-9 (Version None)
Quarter: 2009Q1

REPORT INFORMATION
  Report Type: 
  Country: None (occurrence: None)
  Receive Date: 20090204
  Receipt Date: 20080624
  Transmission Date: 20090719
  Serious: Yes (Other)
  Sender: FDA-Public Use
  Company Number: 276697

PATIENT
  Age: 69 Year
  Sex: Female

DRUGS (1)
  1. NOVOLOG MIX 70/30 [Suspect]
     Indication: INSULIN-REQUIRING TYPE 2 DIABETES MELLITUS
     Dosage: 60 U, QD, SUBCUTANEOUS
     Route: 058

REACTIONS (3)
  - HYPERSENSITIVITY [None]
  - INJECTION SITE IRRITATION [None]
  - MASS [None]
